FAERS Safety Report 11643890 (Version 1)
Quarter: 2015Q4

REPORT INFORMATION
  Report Type: Spontaneous
  Country: US (occurrence: None)
  Receive Date: 20151019
  Receipt Date: 20151019
  Transmission Date: 20160304
  Serious: Yes (Hospitalization, Disabling, Other)
  Sender: FDA-Public Use
  Company Number: None

PATIENT
  Age: 39 Year
  Sex: Female
  Weight: 76.2 kg

DRUGS (1)
  1. CIPRO [Suspect]
     Active Substance: CIPROFLOXACIN HYDROCHLORIDE
     Indication: URINARY TRACT INFECTION
     Dosage: 2 PILLS
     Route: 048
     Dates: start: 20120912, end: 20120914

REACTIONS (43)
  - Paraesthesia [None]
  - Metabolic disorder [None]
  - Joint crepitation [None]
  - Arthropathy [None]
  - Muscle twitching [None]
  - Insomnia [None]
  - Amnesia [None]
  - Dysphagia [None]
  - Vomiting [None]
  - Vertigo [None]
  - Palpitations [None]
  - Autonomic nervous system imbalance [None]
  - Bone pain [None]
  - Neuropathy peripheral [None]
  - Arthralgia [None]
  - Muscular weakness [None]
  - Myalgia [None]
  - Trigeminal neuralgia [None]
  - Muscle spasms [None]
  - Depressed level of consciousness [None]
  - Confusional state [None]
  - Neuralgia [None]
  - Nerve injury [None]
  - Toothache [None]
  - Vision blurred [None]
  - Visual impairment [None]
  - Pain [None]
  - Cystitis interstitial [None]
  - Intervertebral disc degeneration [None]
  - Tooth fracture [None]
  - Anxiety [None]
  - Tremor [None]
  - Impaired gastric emptying [None]
  - Hypoaesthesia [None]
  - Gait disturbance [None]
  - Rash [None]
  - Meniscus injury [None]
  - Fatigue [None]
  - Diplopia [None]
  - Nausea [None]
  - Tachycardia [None]
  - Gastrointestinal disorder [None]
  - General physical health deterioration [None]

NARRATIVE: CASE EVENT DATE: 20120912
